FAERS Safety Report 17724413 (Version 3)
Quarter: 2022Q2

REPORT INFORMATION
  Report Type: Other
  Country: RO (occurrence: None)
  Receive Date: 20200429
  Receipt Date: 20220609
  Transmission Date: 20220721
  Serious: Yes (Other)
  Sender: FDA-Public Use
  Company Number: RO-ROCHE-1851545

PATIENT
  Sex: Female
  Weight: 68 kg

DRUGS (3)
  1. HERCEPTIN [Suspect]
     Active Substance: TRASTUZUMAB
     Indication: Breast cancer
     Route: 058
  2. HERCEPTIN [Suspect]
     Active Substance: TRASTUZUMAB
     Route: 058
     Dates: end: 2017
  3. HERCEPTIN [Suspect]
     Active Substance: TRASTUZUMAB
     Dosage: //2018
     Route: 058

REACTIONS (3)
  - Memory impairment [Not Recovered/Not Resolved]
  - Pulmonary tuberculosis [Recovered/Resolved]
  - Memory impairment [Unknown]

NARRATIVE: CASE EVENT DATE: 20170101
